FAERS Safety Report 12160877 (Version 1)
Quarter: 2016Q1

REPORT INFORMATION
  Report Type: Spontaneous
  Country: US (occurrence: US)
  Receive Date: 20160308
  Receipt Date: 20160308
  Transmission Date: 20160526
  Serious: No
  Sender: FDA-Public Use
  Company Number: US-PRESTIUM-2015RN000010

PATIENT

DRUGS (1)
  1. OLUX-E [Suspect]
     Active Substance: CLOBETASOL PROPIONATE
     Indication: ALOPECIA
     Dosage: SIZE OF A QUARTER OR 1/3 OF INCH
     Route: 061
     Dates: start: 20150127, end: 20150212

REACTIONS (2)
  - Product physical consistency issue [Not Recovered/Not Resolved]
  - Seborrhoea [Not Recovered/Not Resolved]

NARRATIVE: CASE EVENT DATE: 20150127
